FAERS Safety Report 14338113 (Version 1)
Quarter: 2017Q4

REPORT INFORMATION
  Report Type: Other
  Country: IT (occurrence: IT)
  Receive Date: 20171229
  Receipt Date: 20171229
  Transmission Date: 20180321
  Serious: Yes (Hospitalization)
  Sender: FDA-Public Use
  Company Number: IT-SYMPLMED PHARMACEUTICALS-2017SYMPLMED000491

PATIENT

DRUGS (5)
  1. ATENOLOL. [Concomitant]
     Active Substance: ATENOLOL
     Dosage: 50 MG
  2. RIOPAN                             /00141701/ [Concomitant]
     Active Substance: MAGALDRATE
  3. LORAZEPAM. [Concomitant]
     Active Substance: LORAZEPAM
     Dosage: UNK
  4. REAPTAN [Suspect]
     Active Substance: AMLODIPINE BESYLATE
     Indication: HYPERTENSION
     Dosage: (5MG/5MG) TABLET
     Route: 048
  5. LASIX [Concomitant]
     Active Substance: FUROSEMIDE

REACTIONS (5)
  - Gait disturbance [Unknown]
  - Dyspnoea [Unknown]
  - Bradyphrenia [Unknown]
  - Oedema peripheral [Unknown]
  - Asthenia [Unknown]

NARRATIVE: CASE EVENT DATE: 20170411
